FAERS Safety Report 4692726-X (Version None)
Quarter: 2005Q2

REPORT INFORMATION
  Report Type: 
  Country: None (occurrence: None)
  Receive Date: 20050617
  Receipt Date: 20050607
  Transmission Date: 20051028
  Serious: Yes (Other)
  Sender: FDA-Public Use
  Company Number: US-GLAXOSMITHKLINE-A0561620A

PATIENT
  Age: 32 Year
  Sex: Female

DRUGS (3)
  1. PAXIL CR [Suspect]
     Indication: POST-TRAUMATIC STRESS DISORDER
     Dosage: 25MG PER DAY
     Route: 048
     Dates: start: 19980101
  2. PERCOCET [Concomitant]
  3. SOMA [Concomitant]

REACTIONS (15)
  - ABORTION SPONTANEOUS [None]
  - CONVULSION [None]
  - DIARRHOEA [None]
  - DRUG EXPOSURE DURING PREGNANCY [None]
  - DRUG WITHDRAWAL SYNDROME [None]
  - FEELING JITTERY [None]
  - HAEMORRHAGE [None]
  - HYPERHIDROSIS [None]
  - METRORRHAGIA [None]
  - MUSCLE SPASMS [None]
  - MYALGIA [None]
  - PALPITATIONS [None]
  - SPEECH DISORDER [None]
  - TREMOR [None]
  - VOMITING [None]
